FAERS Safety Report 8570738-3 (Version None)
Quarter: 2012Q3

REPORT INFORMATION
  Report Type: 
  Country: None (occurrence: None)
  Receive Date: 20120805
  Receipt Date: 20120727
  Transmission Date: 20120928
  Serious: No
  Sender: FDA-Public Use
  Company Number: US-009507513-1207USA011603

PATIENT

DRUGS (3)
  1. SUSTIVA [Concomitant]
     Route: 048
  2. ISENTRESS [Suspect]
     Indication: HIV INFECTION
     Dosage: 400 MG, BID
     Route: 048
     Dates: start: 20080101
  3. VIREAD [Concomitant]

REACTIONS (2)
  - VIRAL LOAD INCREASED [None]
  - DRUG DOSE OMISSION [None]
